FAERS Safety Report 18929562 (Version 1)
Quarter: 2021Q1

REPORT INFORMATION
  Report Type: Report from Study
  Country: US (occurrence: US)
  Receive Date: 20210223
  Receipt Date: 20210223
  Transmission Date: 20210420
  Serious: Yes (Other)
  Sender: FDA-Public Use
  Company Number: US-JNJFOC-20210226134

PATIENT
  Age: 46 Year
  Sex: Female

DRUGS (3)
  1. SPRAVATO [Suspect]
     Active Substance: ESKETAMINE
     Dosage: 84 MG, TOTAL 22 DOSES
     Dates: start: 20200728, end: 20210126
  2. SPRAVATO [Suspect]
     Active Substance: ESKETAMINE
     Dates: start: 20210211, end: 20210211
  3. SPRAVATO [Suspect]
     Active Substance: ESKETAMINE
     Indication: DEPRESSION
     Dosage: 56 MG, TOTAL 2 DOSES
     Dates: start: 20200720, end: 20200722

REACTIONS (2)
  - Panic attack [Recovered/Resolved]
  - Dissociation [Recovered/Resolved]

NARRATIVE: CASE EVENT DATE: 20210211
